FAERS Safety Report 22905239 (Version 2)
Quarter: 2023Q4

REPORT INFORMATION
  Report Type: Report from Study
  Country: US (occurrence: US)
  Receive Date: 20230905
  Receipt Date: 20231013
  Transmission Date: 20240110
  Serious: Yes (Hospitalization)
  Sender: FDA-Public Use
  Company Number: US-SANDOZ-SDZ2023US022442

PATIENT
  Age: 79 Year
  Sex: Male

DRUGS (32)
  1. METOLAZONE [Suspect]
     Active Substance: METOLAZONE
     Dosage: 2.5 MG, BID (2.5 MG IN THE MORNING AND 2.5 MG IN THE EVENING PER INSTRUCTION)
     Route: 065
     Dates: start: 20230718
  2. METOLAZONE [Suspect]
     Active Substance: METOLAZONE
     Indication: Fluid retention
     Dosage: 5 MG, PRN
     Route: 048
     Dates: start: 20230129
  3. METOLAZONE [Suspect]
     Active Substance: METOLAZONE
     Dosage: 5 MG, PRN (ONLY WHEN DIRECTED BY THE CARDIOLOGIST)
     Route: 065
  4. METOLAZONE [Suspect]
     Active Substance: METOLAZONE
     Indication: Product used for unknown indication
     Route: 065
  5. METOLAZONE [Suspect]
     Active Substance: METOLAZONE
     Indication: Product used for unknown indication
     Route: 065
  6. ALBUTEROL [Concomitant]
     Active Substance: ALBUTEROL
     Indication: Product used for unknown indication
     Dosage: 90 UG, PRN
     Route: 055
  7. ALLOPURINOL [Concomitant]
     Active Substance: ALLOPURINOL
     Indication: Oedema
     Dosage: 100 MG, QD
     Route: 048
     Dates: start: 20200214
  8. ALLOPURINOL [Concomitant]
     Active Substance: ALLOPURINOL
     Indication: Gout
  9. ATORVASTATIN [Concomitant]
     Active Substance: ATORVASTATIN
     Indication: Dyslipidaemia
     Dosage: 10 MG, PRN
     Route: 048
     Dates: start: 20190311
  10. BUMEX [Concomitant]
     Active Substance: BUMETANIDE
     Dosage: 4 MG, BID
     Route: 065
     Dates: start: 20230721
  11. BUMEX [Concomitant]
     Active Substance: BUMETANIDE
     Dosage: 4 MG, BID
     Route: 065
     Dates: start: 20230726
  12. BUMEX [Concomitant]
     Active Substance: BUMETANIDE
     Indication: Chronic myeloid leukaemia
     Dosage: 6 MG, BID
     Route: 048
  13. BUMEX [Concomitant]
     Active Substance: BUMETANIDE
     Dosage: 6 MG, BID
     Route: 048
  14. BUMEX [Concomitant]
     Active Substance: BUMETANIDE
     Dosage: UNK MG, BID ( 4-6 MG)
     Route: 065
  15. BUMEX [Concomitant]
     Active Substance: BUMETANIDE
     Dosage: UNK
     Route: 065
     Dates: start: 20230719
  16. COVID-19 vaccine [Concomitant]
     Indication: Product used for unknown indication
     Dosage: UNK
     Route: 065
     Dates: start: 20210202
  17. COVID-19 vaccine [Concomitant]
     Dosage: UNK
     Route: 065
     Dates: start: 20210223
  18. COVID-19 vaccine [Concomitant]
     Dosage: UNK
     Route: 065
     Dates: start: 20210921
  19. FARXIGA [Concomitant]
     Active Substance: DAPAGLIFLOZIN PROPANEDIOL
     Indication: Cardiac failure
     Dosage: 10 MG, QD
     Route: 048
  20. FARXIGA [Concomitant]
     Active Substance: DAPAGLIFLOZIN PROPANEDIOL
     Dosage: 10 MG, QD
     Route: 065
     Dates: start: 20230726
  21. FARXIGA [Concomitant]
     Active Substance: DAPAGLIFLOZIN PROPANEDIOL
     Dosage: 10 MG, QD
     Route: 065
  22. FLUTICASONE FUROATE\VILANTEROL TRIFENATATE [Concomitant]
     Active Substance: FLUTICASONE FUROATE\VILANTEROL TRIFENATATE
     Indication: Product used for unknown indication
     Dosage: 1 UNK, QD (1 PUFF INTO THE LUNGS)
     Route: 065
  23. HYDRALAZINE [Concomitant]
     Active Substance: HYDRALAZINE HYDROCHLORIDE
     Indication: Cardiac failure
     Dosage: 25 MG, TID
     Route: 048
     Dates: start: 201906
  24. HYDRALAZINE [Concomitant]
     Active Substance: HYDRALAZINE HYDROCHLORIDE
     Indication: Hypertension
  25. VITAMINS [Concomitant]
     Active Substance: VITAMINS
     Indication: Product used for unknown indication
     Dosage: 1 UNK, QD
     Route: 065
  26. PANTOPRAZOLE [Concomitant]
     Active Substance: PANTOPRAZOLE
     Indication: Gastrooesophageal reflux disease
     Dosage: 40 MG, QD
     Route: 065
  27. POTASSIUM [Concomitant]
     Active Substance: POTASSIUM
     Indication: Cardiac failure chronic
     Dosage: 40 MEQ, BID
     Route: 048
  28. RIVAROXABAN [Concomitant]
     Active Substance: RIVAROXABAN
     Indication: Atrial fibrillation
     Dosage: 20 MG, QD
     Route: 048
     Dates: start: 20190605
  29. SERTRALINE [Concomitant]
     Active Substance: SERTRALINE HYDROCHLORIDE
     Indication: Adjustment disorder with depressed mood
     Dosage: 25 MG, QD
     Route: 065
  30. SINEMET [Concomitant]
     Active Substance: CARBIDOPA\LEVODOPA
     Indication: Parkinson^s disease
     Dosage: 1.5 MG, TID
     Route: 048
  31. SPIRONOLACTONE [Concomitant]
     Active Substance: SPIRONOLACTONE
     Indication: Chronic left ventricular failure
     Dosage: 25 MG, QD
     Route: 065
  32. SPIRONOLACTONE [Concomitant]
     Active Substance: SPIRONOLACTONE
     Dosage: 25 MG, QD
     Route: 065
     Dates: start: 20230726

REACTIONS (11)
  - Acute kidney injury [Recovered/Resolved]
  - Cardiac failure [Recovered/Resolved]
  - Cardiac failure acute [Unknown]
  - Fall [Unknown]
  - Injury [Unknown]
  - Pollakiuria [Unknown]
  - Weight decreased [Unknown]
  - Hyponatraemia [Unknown]
  - Fracture [Unknown]
  - Dehydration [Unknown]
  - Chronic left ventricular failure [Unknown]

NARRATIVE: CASE EVENT DATE: 20230724
